FAERS Safety Report 13740102 (Version 1)
Quarter: 2017Q3

REPORT INFORMATION
  Report Type: Spontaneous
  Country: US (occurrence: US)
  Receive Date: 20170710
  Receipt Date: 20170710
  Transmission Date: 20171127
  Serious: No
  Sender: FDA-Public Use
  Company Number: None

PATIENT
  Age: 30 Year
  Sex: Female
  Weight: 60.75 kg

DRUGS (3)
  1. NORGESTIMATE; ETHINYL ESTRADIOL [Suspect]
     Active Substance: ETHINYL ESTRADIOL\NORGESTIMATE
     Indication: CONTRACEPTION
     Dates: start: 20160901, end: 20170710
  2. WOMEN^S MULTIVITAMIN GUMMIES (UP+UP BRAND) [Concomitant]
  3. NORGESTIMATE; ETHINYL ESTRADIOL [Suspect]
     Active Substance: ETHINYL ESTRADIOL\NORGESTIMATE
     Indication: ACNE
     Dates: start: 20160901, end: 20170710

REACTIONS (3)
  - Breast tenderness [None]
  - Product substitution issue [None]
  - Vaginal haemorrhage [None]

NARRATIVE: CASE EVENT DATE: 20170710
